FAERS Safety Report 8598783-2 (Version None)
Quarter: 2012Q3

REPORT INFORMATION
  Report Type: 
  Country: None (occurrence: None)
  Receive Date: 20120816
  Receipt Date: 20120806
  Transmission Date: 20120928
  Serious: Yes (Hospitalization)
  Sender: FDA-Public Use
  Company Number: US-GLAXOSMITHKLINE-A0785982A

PATIENT
  Age: 74 Year
  Sex: Female
  Weight: 81.8 kg

DRUGS (5)
  1. TOPROL-XL [Concomitant]
     Dates: start: 19900101
  2. METOPROLOL TARTRATE [Concomitant]
     Dates: start: 20000101
  3. NITROGLYCERIN [Concomitant]
     Dates: start: 20040101
  4. SIMVASTATIN [Concomitant]
  5. AVANDIA [Suspect]
     Indication: DIABETES MELLITUS
     Dosage: 4MG PER DAY
     Route: 048
     Dates: start: 20050101, end: 20060715

REACTIONS (4)
  - MYOCARDIAL INFARCTION [None]
  - CEREBROVASCULAR DISORDER [None]
  - CARDIOGENIC SHOCK [None]
  - CARDIAC FAILURE CONGESTIVE [None]
